FAERS Safety Report 15171504 (Version 1)
Quarter: 2018Q3

REPORT INFORMATION
  Report Type: Spontaneous
  Country: GB (occurrence: GB)
  Receive Date: 20180720
  Receipt Date: 20180720
  Transmission Date: 20181010
  Serious: Yes (Death)
  Sender: FDA-Public Use
  Company Number: GB-PFIZER INC-2018292385

PATIENT
  Age: 34 Year
  Sex: Female

DRUGS (4)
  1. PREGABALIN. [Suspect]
     Active Substance: PREGABALIN
  2. CANNABIS [Suspect]
     Active Substance: CANNABIS SATIVA SUBSP. INDICA TOP
     Dosage: UNK
  3. ALCOHOL. [Suspect]
     Active Substance: ALCOHOL
     Dosage: UNK
  4. COCAINE [Suspect]
     Active Substance: COCAINE
     Dosage: UNK

REACTIONS (7)
  - Peripheral swelling [Unknown]
  - Injury [Unknown]
  - Drug abuse [Fatal]
  - Alcohol poisoning [Fatal]
  - Toxicity to various agents [Fatal]
  - Contusion [Unknown]
  - Drug level above therapeutic [Unknown]
